FAERS Safety Report 20764399 (Version 1)
Quarter: 2022Q2

REPORT INFORMATION
  Report Type: Report from Study
  Country: TH (occurrence: TH)
  Receive Date: 20220428
  Receipt Date: 20220428
  Transmission Date: 20220721
  Serious: Yes (Hospitalization)
  Sender: FDA-Public Use
  Company Number: TH-PFIZER INC-202200611986

PATIENT
  Age: 50 Year
  Sex: Male
  Weight: 110 kg

DRUGS (5)
  1. NIRMATRELVIR [Suspect]
     Active Substance: NIRMATRELVIR
     Indication: COVID-19
     Dosage: 300 MG, EVERY 12 HOURS (Q12H) FOR 5 DAYS
     Route: 048
     Dates: start: 20210908, end: 20210912
  2. RITONAVIR [Suspect]
     Active Substance: RITONAVIR
     Indication: COVID-19
     Dosage: 100 MG,  EVERY 12 HOURS (Q12H) FOR 5 DAYS
     Route: 048
     Dates: start: 20210908, end: 20210912
  3. FAVIPIRAVIR [Concomitant]
     Active Substance: FAVIPIRAVIR
     Indication: COVID-19
     Dosage: 2400 MG, 2X/DAY (BID)
     Route: 048
     Dates: start: 20210907, end: 20210908
  4. FAVIPIRAVIR [Concomitant]
     Active Substance: FAVIPIRAVIR
     Dosage: 1000, 2X/DAY (BID)
     Route: 048
     Dates: start: 20210908, end: 20210909
  5. METFORMIN [Concomitant]
     Active Substance: METFORMIN HYDROCHLORIDE
     Indication: Diabetes mellitus
     Dosage: 500 MG, 2X/DAY (BID)
     Route: 048
     Dates: start: 20210908, end: 20211016

REACTIONS (1)
  - COVID-19 pneumonia [Recovered/Resolved]

NARRATIVE: CASE EVENT DATE: 20210909
